FAERS Safety Report 6153644-3 (Version None)
Quarter: 2009Q2

REPORT INFORMATION
  Report Type: 
  Country: None (occurrence: None)
  Receive Date: 20090413
  Receipt Date: 20090407
  Transmission Date: 20091009
  Serious: Yes (Other)
  Sender: FDA-Public Use
  Company Number: IN-AMGEN-UK335775

PATIENT
  Sex: Male

DRUGS (17)
  1. PANITUMUMAB [Suspect]
     Indication: SQUAMOUS CELL CARCINOMA
     Route: 042
     Dates: start: 20081218, end: 20090131
  2. FLUOROURACIL [Concomitant]
     Route: 042
     Dates: start: 20081218, end: 20090204
  3. ONDANSETRON [Concomitant]
     Route: 042
     Dates: start: 20090131
  4. REGLAN [Concomitant]
     Dates: start: 20090210
  5. APREPITANT [Concomitant]
     Route: 048
     Dates: start: 20090131
  6. ATIVAN [Concomitant]
     Route: 048
     Dates: start: 20090131
  7. HEPARIN [Concomitant]
     Dates: start: 20090203, end: 20090214
  8. BETNOVATE [Concomitant]
     Dates: start: 20090204, end: 20090214
  9. METOCLOPRAMIDE [Concomitant]
     Dates: start: 20090208, end: 20090209
  10. MORPHINE [Concomitant]
     Route: 048
     Dates: start: 20081201, end: 20090101
  11. DULCOLAX [Concomitant]
     Route: 048
     Dates: start: 20081201, end: 20090101
  12. MANNITOL [Concomitant]
     Route: 042
     Dates: start: 20081215
  13. POTASSIUM CHLORIDE [Concomitant]
     Route: 042
     Dates: start: 20081218
  14. MAGNESIUM SULFATE [Concomitant]
     Route: 042
     Dates: start: 20081215
  15. CISPLATIN [Concomitant]
     Route: 042
     Dates: start: 20081218, end: 20090131
  16. RABEPRAZOLE SODIUM [Concomitant]
     Route: 048
     Dates: start: 20090221, end: 20090310
  17. RANITIDINE [Concomitant]
     Route: 048
     Dates: start: 20090210, end: 20090221

REACTIONS (3)
  - ICHTHYOSIS ACQUIRED [None]
  - PSORIASIS [None]
  - SUBCUTANEOUS ABSCESS [None]
